FAERS Safety Report 4951196-4 (Version None)
Quarter: 2006Q1

REPORT INFORMATION
  Report Type: 
  Country: None (occurrence: None)
  Receive Date: 20060314
  Receipt Date: 20060307
  Transmission Date: 20060701
  Serious: Yes (Other)
  Sender: FDA-Public Use
  Company Number: 200513477GDS

PATIENT
  Age: 59 Year
  Sex: Male
  Weight: 70 kg

DRUGS (2)
  1. LEVITRA [Suspect]
     Indication: ERECTILE DYSFUNCTION
     Dosage: ORAL
     Route: 048
     Dates: start: 20041218, end: 20050922
  2. CAPTOPRIL [Concomitant]

REACTIONS (6)
  - BLINDNESS [None]
  - CARDIAC DISORDER [None]
  - CARDIOMEGALY [None]
  - EYE PAIN [None]
  - HEADACHE [None]
  - OPTIC ISCHAEMIC NEUROPATHY [None]
